FAERS Safety Report 19065994 (Version 1)
Quarter: 2021Q1

REPORT INFORMATION
  Report Type: Spontaneous
  Country: US (occurrence: US)
  Receive Date: 20210327
  Receipt Date: 20210327
  Transmission Date: 20210420
  Serious: No
  Sender: FDA-Public Use
  Company Number: US-TAKEDA-2021TUS017646

PATIENT
  Sex: Male
  Weight: 68.03 kg

DRUGS (11)
  1. GAMMAGARD LIQUID [Suspect]
     Active Substance: HUMAN IMMUNOGLOBULIN G
     Indication: CONGENITAL HYPOGAMMAGLOBULINAEMIA
     Dosage: 40 GRAM, Q4WEEKS
     Route: 042
     Dates: start: 20130808
  2. BENZONATATE. [Concomitant]
     Active Substance: BENZONATATE
  3. SODIUM CHLORIDE. [Concomitant]
     Active Substance: SODIUM CHLORIDE
  4. DUPIXENT [Concomitant]
     Active Substance: DUPILUMAB
  5. PROAIR HFA [Concomitant]
     Active Substance: ALBUTEROL SULFATE
  6. GAMMAGARD LIQUID [Suspect]
     Active Substance: HUMAN IMMUNOGLOBULIN G
     Indication: ASTHMA
  7. TEMAZEPAM. [Concomitant]
     Active Substance: TEMAZEPAM
  8. GAMMAGARD LIQUID [Suspect]
     Active Substance: HUMAN IMMUNOGLOBULIN G
     Indication: IMMUNODEFICIENCY COMMON VARIABLE
  9. DIPHENHYDRAMINE. [Concomitant]
     Active Substance: DIPHENHYDRAMINE
  10. PREDNISONE. [Concomitant]
     Active Substance: PREDNISONE
  11. EPINEPHRINE. [Concomitant]
     Active Substance: EPINEPHRINE

REACTIONS (1)
  - Sinus operation [Unknown]
